FAERS Safety Report 4304379-0 (Version None)
Quarter: 2004Q1

REPORT INFORMATION
  Report Type: 
  Country: None (occurrence: None)
  Receive Date: 20040224
  Receipt Date: 20040212
  Transmission Date: 20041129
  Serious: Yes (Other)
  Sender: FDA-Public Use
  Company Number: HQWYE984913FEB04

PATIENT
  Age: 54 Year
  Sex: Female
  Weight: 68.1 kg

DRUGS (8)
  1. EFFEXOR XR [Suspect]
     Dosage: 112.5 MG 1X PER 1 DAY, ORAL
     Route: 048
     Dates: start: 20040126
  2. CLIMARA [Suspect]
     Indication: HORMONE REPLACEMENT THERAPY
     Dosage: TRANSDERMAL
     Route: 062
     Dates: start: 20031201, end: 20040209
  3. PHENYTOIN [Suspect]
     Indication: CONVULSION
     Dosage: 450 MG 1X PER 1 DAY
  4. PREMPRO [Suspect]
     Indication: HORMONE REPLACEMENT THERAPY
     Dosage: SEE IMAGE
     Route: 048
     Dates: start: 19990101, end: 20040125
  5. PREMPRO [Suspect]
     Indication: HORMONE REPLACEMENT THERAPY
     Dosage: SEE IMAGE
     Route: 048
     Dates: start: 20040126
  6. KEPPRA [Concomitant]
  7. METOPROLOL (METOPROLOL) [Concomitant]
  8. SPIRONOLACTONE [Concomitant]

REACTIONS (6)
  - BLOOD PRESSURE DIASTOLIC INCREASED [None]
  - CONVULSION [None]
  - DRUG INTERACTION [None]
  - HEART RATE INCREASED [None]
  - INSOMNIA [None]
  - TREMOR [None]
